FAERS Safety Report 11599057 (Version 1)
Quarter: 2015Q4

REPORT INFORMATION
  Report Type: Report from Study
  Country: PL (occurrence: PL)
  Receive Date: 20151006
  Receipt Date: 20151006
  Transmission Date: 20160304
  Serious: Yes (Other)
  Sender: FDA-Public Use
  Company Number: PHHY2015PL117131

PATIENT
  Sex: Male

DRUGS (6)
  1. SANDOSTATIN LAR DEPOT [Suspect]
     Active Substance: OCTREOTIDE ACETATE
     Dosage: 30 MG, QMO (EVERY 4 WEEKS)
     Route: 065
     Dates: end: 200611
  2. SANDOSTATIN LAR DEPOT [Suspect]
     Active Substance: OCTREOTIDE ACETATE
     Indication: ACROMEGALY
     Dosage: 20 MG, QMO (EVERY 4 WEEKS)
     Route: 065
  3. CABERGOLINE. [Suspect]
     Active Substance: CABERGOLINE
     Indication: ACROMEGALY
     Dosage: 1 MG, QW (PER WEEK)
     Route: 065
  4. SANDOSTATIN LAR DEPOT [Suspect]
     Active Substance: OCTREOTIDE ACETATE
     Dosage: 30 MG, QMO (EVERY 4 WEEKS)
     Route: 065
  5. SANDOSTATIN LAR DEPOT [Suspect]
     Active Substance: OCTREOTIDE ACETATE
     Dosage: 40 MG, QMO (EVERY 4 WEEKS)
     Route: 065
     Dates: start: 201401
  6. PEGVISOMANT [Suspect]
     Active Substance: PEGVISOMANT
     Indication: ACROMEGALY
     Dosage: 10 MG, QD
     Route: 058

REACTIONS (15)
  - Haemangioma [Unknown]
  - Anxiety [Unknown]
  - Drug ineffective [Unknown]
  - Left ventricular hypertrophy [Unknown]
  - Blood glucose abnormal [Unknown]
  - Drug resistance [Unknown]
  - Hyperhidrosis [Recovering/Resolving]
  - Depression [Unknown]
  - Headache [Recovering/Resolving]
  - Swelling [Recovering/Resolving]
  - Haemorrhoids [Unknown]
  - Insulin-like growth factor increased [Unknown]
  - Goitre [Unknown]
  - Blood growth hormone increased [Unknown]
  - Blood insulin increased [Unknown]

NARRATIVE: CASE EVENT DATE: 200611
